FAERS Safety Report 14320943 (Version 2)
Quarter: 2018Q1

REPORT INFORMATION
  Report Type: Report from Study
  Country: JP (occurrence: JP)
  Receive Date: 20171223
  Receipt Date: 20180308
  Transmission Date: 20180509
  Serious: Yes (Hospitalization, Other)
  Sender: FDA-Public Use
  Company Number: JP-AMGEN-JPNCT2017190253

PATIENT
  Age: 84 Year
  Sex: Female

DRUGS (34)
  1. ABILIFY [Concomitant]
     Active Substance: ARIPIPRAZOLE
     Indication: INSOMNIA
     Dosage: 6 MG, UNK
     Route: 048
     Dates: start: 20171103
  2. SODIUM RABEPRAZOLE [Concomitant]
     Active Substance: RABEPRAZOLE SODIUM
     Indication: PROPHYLAXIS
     Dosage: 10 MG, UNK
     Route: 048
     Dates: start: 20171016
  3. LOXONIN [Concomitant]
     Active Substance: LOXOPROFEN SODIUM
     Dosage: 200 MG, UNK
     Route: 061
     Dates: start: 20170502, end: 20171108
  4. LYRICA [Concomitant]
     Active Substance: PREGABALIN
     Dosage: 150 MG, UNK
     Route: 048
     Dates: start: 20171019, end: 20171116
  5. DARBEPOETIN ALFA [Suspect]
     Active Substance: DARBEPOETIN ALFA
     Dosage: 240 MUG, QWK
     Route: 058
     Dates: start: 20160405
  6. ZINC OXIDE. [Concomitant]
     Active Substance: ZINC OXIDE
     Indication: PRURITUS
     Dosage: UNK
     Route: 061
     Dates: end: 20160105
  7. WARFARIN [Concomitant]
     Active Substance: WARFARIN
     Indication: ATRIAL FIBRILLATION
     Dosage: 2 MG, UNK
     Route: 048
     Dates: start: 20160829, end: 20171124
  8. VESICARE [Concomitant]
     Active Substance: SOLIFENACIN SUCCINATE
     Indication: HYPERTONIC BLADDER
     Dosage: 5 MG, UNK
     Route: 048
  9. NEUROTROPIN [Concomitant]
     Active Substance: NEUROTROPIN
     Dosage: 16 IU, UNK
     Route: 048
     Dates: start: 20171103
  10. PURSENNID [Concomitant]
     Active Substance: SENNOSIDES A AND B
     Indication: CONSTIPATION
     Dosage: UNK UNK, AS NECESSARY
     Route: 048
  11. ROZEREM [Concomitant]
     Active Substance: RAMELTEON
     Dosage: 8 MG, UNK
     Route: 048
     Dates: start: 20171106
  12. REBAMIPIDE [Concomitant]
     Active Substance: REBAMIPIDE
     Indication: PROPHYLAXIS
     Dosage: 100 MG, UNK
     Route: 048
     Dates: start: 20170502, end: 20170502
  13. BELSOMRA [Concomitant]
     Active Substance: SUVOREXANT
     Dosage: 15 MG, UNK
     Route: 048
     Dates: start: 20171016
  14. DARBEPOETIN ALFA [Suspect]
     Active Substance: DARBEPOETIN ALFA
     Dosage: 240 MUG, UNK
     Route: 058
     Dates: start: 20170523
  15. BISMUTH SUBGALLATE [Concomitant]
     Active Substance: BISMUTH SUBGALLATE
     Indication: PRURITUS
     Dosage: UNK
     Route: 061
     Dates: end: 20160105
  16. EXJADE [Concomitant]
     Active Substance: DEFERASIROX
     Indication: IRON OVERLOAD
     Dosage: 750 MG, UNK
     Route: 048
     Dates: start: 20170117, end: 20171102
  17. TULOBUTEROL [Concomitant]
     Active Substance: TULOBUTEROL
     Indication: COUGH
     Dosage: 2 MG, UNK
     Route: 062
     Dates: start: 201710
  18. MYSER [Concomitant]
     Active Substance: DIFLUPREDNATE
     Indication: PRURITUS
     Dosage: UNK
     Route: 061
     Dates: end: 20160105
  19. MAGNESIUM OXIDE. [Concomitant]
     Active Substance: MAGNESIUM OXIDE
     Indication: CONSTIPATION
     Dosage: UNK, AS NECESSARY
     Route: 048
  20. TRAMCET [Concomitant]
     Active Substance: ACETAMINOPHEN\TRAMADOL
     Dosage: 4 DF, UNK
     Route: 048
     Dates: start: 20171103
  21. LIMAPROST ALFADEX [Concomitant]
     Active Substance: LIMAPROST
     Dosage: 15 MUG, UNK
     Route: 048
     Dates: start: 20171019
  22. ALLELOCK [Concomitant]
     Active Substance: OLOPATADINE HYDROCHLORIDE
     Indication: PRURITUS
     Dosage: 5 MG, UNK
     Route: 048
     Dates: end: 20160105
  23. CELECOX [Concomitant]
     Active Substance: CELECOXIB
     Indication: OSTEOARTHRITIS
     Dosage: 200 MG, UNK
     Route: 048
     Dates: start: 20170620, end: 20171102
  24. METHYCOBAL [Concomitant]
     Active Substance: METHYLCOBALAMIN
     Indication: BACK PAIN
     Dosage: 1500 MUG, UNK
     Route: 048
     Dates: start: 20171103
  25. NIFLAN [Concomitant]
     Active Substance: PRANOPROFEN
     Dosage: UNK
     Route: 047
     Dates: start: 20170214, end: 20170411
  26. NORSPAN [Concomitant]
     Active Substance: BUPRENORPHINE
     Dosage: 10 MG, QWK
     Route: 062
     Dates: start: 20171025
  27. MOHRUS [Concomitant]
     Active Substance: KETOPROFEN
     Dosage: 30 MG, UNK
     Route: 061
     Dates: start: 20170502
  28. DARBEPOETIN ALFA [Suspect]
     Active Substance: DARBEPOETIN ALFA
     Indication: MYELODYSPLASTIC SYNDROME
     Dosage: 240 MUG, QWK
     Route: 058
     Dates: start: 20151208
  29. DARBEPOETIN ALFA [Suspect]
     Active Substance: DARBEPOETIN ALFA
     Dosage: 240 MUG, QWK
     Route: 058
     Dates: start: 20170620, end: 20171031
  30. LEVOFLOXACIN HEMIHYDRATE [Concomitant]
     Active Substance: LEVOFLOXACIN
     Dosage: UNK
     Route: 047
     Dates: start: 20161220, end: 20170214
  31. LUNESTA [Concomitant]
     Active Substance: ESZOPICLONE
     Dosage: 1 MG, UNK
     Route: 048
     Dates: start: 20171019, end: 20171025
  32. DARBEPOETIN ALFA [Suspect]
     Active Substance: DARBEPOETIN ALFA
     Dosage: 240 MUG, Q2WK
     Route: 058
     Dates: start: 20160315
  33. CALONAL [Concomitant]
     Active Substance: ACETAMINOPHEN
     Dosage: 200 MG, UNK
     Route: 048
     Dates: start: 20170502, end: 20171020
  34. POPIDON [Concomitant]
     Dosage: UNK
     Route: 049
     Dates: start: 20170620

REACTIONS (7)
  - Iron overload [Recovering/Resolving]
  - Back pain [Recovered/Resolved]
  - Back pain [Recovering/Resolving]
  - Genital erythema [Recovering/Resolving]
  - Cough [Recovered/Resolved]
  - Insomnia [Recovered/Resolved]
  - Conjunctivitis bacterial [Recovered/Resolved]

NARRATIVE: CASE EVENT DATE: 20161220
